FAERS Safety Report 11453897 (Version 1)
Quarter: 2015Q3

REPORT INFORMATION
  Report Type: Report from Study
  Country: VE (occurrence: VE)
  Receive Date: 20150903
  Receipt Date: 20150903
  Transmission Date: 20151125
  Serious: Yes (Other)
  Sender: FDA-Public Use
  Company Number: PHHY2015VE105743

PATIENT
  Sex: Female

DRUGS (4)
  1. ACLASTA [Suspect]
     Active Substance: ZOLEDRONIC ACID
     Indication: OSTEOPOROSIS
     Dosage: 5 MG/DL, Q12MO
     Route: 065
     Dates: start: 20120620
  2. CENTRUM [Concomitant]
     Active Substance: VITAMINS
     Indication: NERVOUS SYSTEM DISORDER
     Dosage: UNK UNK, QD
     Route: 065
     Dates: start: 201505
  3. ACLASTA [Suspect]
     Active Substance: ZOLEDRONIC ACID
     Indication: SPINAL DEFORMITY
     Dosage: UNK
     Route: 065
     Dates: start: 2014
  4. CALCIBON (CALCIUM CITRATE) [Concomitant]
     Indication: BONE DISORDER
     Dosage: UNK UNK, QD
     Route: 065

REACTIONS (2)
  - Memory impairment [Unknown]
  - Chikungunya virus infection [Unknown]
